FAERS Safety Report 5291872-X (Version None)
Quarter: 2007Q2

REPORT INFORMATION
  Report Type: 
  Country: None (occurrence: None)
  Receive Date: 20070406
  Receipt Date: 20070406
  Transmission Date: 20071010
  Serious: Yes (Life-Threatening, Hospitalization)
  Sender: FDA-Public Use
  Company Number: None

PATIENT
  Age: 79 Year
  Sex: Male
  Weight: 84.8226 kg

DRUGS (12)
  1. POTASSIUM CHLORIDE 10MEQ [Suspect]
     Dosage: 7 TABLETS (70MEQ) BID  PO
     Route: 048
     Dates: start: 20030101, end: 20040201
  2. LISINOPRIL [Suspect]
     Indication: CARDIAC FAILURE CONGESTIVE
     Dosage: 10 MG  DAILY  PO
     Route: 048
  3. CARBAMAZEPINE [Concomitant]
  4. DIGOXIN [Concomitant]
  5. FUROSEMIDE [Concomitant]
  6. FOLIC ACID [Concomitant]
  7. LEVOTHYROXINE SODIUM [Concomitant]
  8. SIMVASTATIN [Concomitant]
  9. METOPROLOL SUCC [Concomitant]
  10. ACETAMINOPHEN [Concomitant]
  11. WARFARIN SODIUM [Concomitant]
  12. CAPSAICIN [Concomitant]

REACTIONS (5)
  - ASTHENIA [None]
  - BRADYCARDIA [None]
  - HAEMODIALYSIS [None]
  - HYPERKALAEMIA [None]
  - RENAL FAILURE ACUTE [None]
